FAERS Safety Report 13866382 (Version 1)
Quarter: 2017Q3

REPORT INFORMATION
  Report Type: Spontaneous
  Country: US (occurrence: US)
  Receive Date: 20170814
  Receipt Date: 20170814
  Transmission Date: 20171127
  Serious: No
  Sender: FDA-Public Use
  Company Number: US-ROCHE-1899626

PATIENT
  Age: 60 Year
  Sex: Female

DRUGS (1)
  1. ACTEMRA [Suspect]
     Active Substance: TOCILIZUMAB
     Indication: RHEUMATOID ARTHRITIS
     Dosage: FIRST DISPENSED FROM KROGER PHARMACY AUGUST 2015 ;ONGOING: YES
     Route: 058

REACTIONS (2)
  - Abdominal discomfort [Recovering/Resolving]
  - Inner ear disorder [Unknown]

NARRATIVE: CASE EVENT DATE: 201612
